FAERS Safety Report 7503868-5 (Version None)
Quarter: 2011Q2

REPORT INFORMATION
  Report Type: 
  Country: None (occurrence: None)
  Receive Date: 20110525
  Receipt Date: 20110518
  Transmission Date: 20111010
  Serious: Yes (Death)
  Sender: FDA-Public Use
  Company Number: US-JNJFOC-20110508534

PATIENT
  Sex: Female

DRUGS (2)
  1. EXTRA STRENGTH TYLENOL PM [Suspect]
     Indication: NASOPHARYNGITIS
  2. NYQUIL [Suspect]
     Indication: NASOPHARYNGITIS

REACTIONS (1)
  - ACCIDENTAL OVERDOSE [None]
